FAERS Safety Report 11590337 (Version 1)
Quarter: 2015Q4

REPORT INFORMATION
  Report Type: Spontaneous
  Country: US (occurrence: US)
  Receive Date: 20151002
  Receipt Date: 20151002
  Transmission Date: 20160304
  Serious: Yes (Other)
  Sender: FDA-Public Use
  Company Number: US-NOVOPROD-465398

PATIENT
  Sex: Female
  Weight: 140 kg

DRUGS (2)
  1. NOVOSEVEN RT [Suspect]
     Active Substance: COAGULATION FACTOR VIIA RECOMBINANT HUMAN
     Indication: ACQUIRED HAEMOPHILIA
     Route: 042
  2. NOVOSEVEN RT [Suspect]
     Active Substance: COAGULATION FACTOR VIIA RECOMBINANT HUMAN
     Indication: COMPARTMENT SYNDROME

REACTIONS (4)
  - Electrocardiogram change [Unknown]
  - Deep vein thrombosis [Unknown]
  - Enzyme level abnormal [Unknown]
  - Haemorrhage [Recovered/Resolved]
